FAERS Safety Report 9139317 (Version 2)
Quarter: 2013Q1

REPORT INFORMATION
  Report Type: Spontaneous
  Country: GB (occurrence: GB)
  Receive Date: 20130305
  Receipt Date: 20130319
  Transmission Date: 20140127
  Serious: Yes (Hospitalization, Other)
  Sender: FDA-Public Use
  Company Number: PHFR2013GB001377

PATIENT
  Age: 43 Year
  Sex: Male

DRUGS (2)
  1. CLOZARIL [Suspect]
     Indication: SCHIZOPHRENIA
     Dosage: 250 MG, UNK
     Route: 048
     Dates: start: 20130205, end: 20130301
  2. ZOPICLONE [Interacting]

REACTIONS (6)
  - Atrial fibrillation [Recovered/Resolved with Sequelae]
  - Heart rate increased [Unknown]
  - Drug interaction [Unknown]
  - Confusional state [Unknown]
  - Hallucination [Unknown]
  - Dizziness [Recovered/Resolved with Sequelae]
